FAERS Safety Report 21928048 (Version 1)
Quarter: 2023Q1

REPORT INFORMATION
  Report Type: Spontaneous
  Country: FR (occurrence: None)
  Receive Date: 20230130
  Receipt Date: 20230130
  Transmission Date: 20230417
  Serious: Yes (Other)
  Sender: FDA-Public Use
  Company Number: FR-ROCHE-3272548

PATIENT
  Age: 79 Year
  Sex: Female

DRUGS (3)
  1. RIVOTRIL [Suspect]
     Active Substance: CLONAZEPAM
     Indication: Fibromyalgia
     Dosage: ONE AND THREE QUARTERS TABLETS, FOR APPROXIMATELY 20 YEARS
     Route: 065
  2. RIVOTRIL [Suspect]
     Active Substance: CLONAZEPAM
     Indication: Fibromyalgia
     Route: 065
  3. TYROSINE [Concomitant]
     Active Substance: TYROSINE

REACTIONS (6)
  - Drug dependence [Unknown]
  - Amnesia [Unknown]
  - Bulimia nervosa [Not Recovered/Not Resolved]
  - Insomnia [Not Recovered/Not Resolved]
  - Off label use [Unknown]
  - Withdrawal syndrome [Unknown]
